FAERS Safety Report 20496804 (Version 1)
Quarter: 2022Q1

REPORT INFORMATION
  Report Type: Spontaneous
  Country: BY (occurrence: BY)
  Receive Date: 20220221
  Receipt Date: 20220221
  Transmission Date: 20220423
  Serious: Yes (Other)
  Sender: FDA-Public Use
  Company Number: BY-ABBVIE-22K-209-4282368-00

PATIENT
  Age: 6 Year
  Sex: Female

DRUGS (8)
  1. VALPROATE SODIUM [Suspect]
     Active Substance: VALPROATE SODIUM
     Indication: Petit mal epilepsy
     Dosage: MORNING DOSE  200 MG, EVENING DOSE 100 MG
     Route: 048
     Dates: start: 20190207, end: 20190212
  2. VALPROATE SODIUM [Suspect]
     Active Substance: VALPROATE SODIUM
     Dosage: MORNING DOSE  250 MG, EVENING DOSE 100 MG
     Route: 048
     Dates: start: 20190212, end: 20190215
  3. VALPROATE SODIUM [Suspect]
     Active Substance: VALPROATE SODIUM
     Dosage: MORNING DOSE  250 MG, EVENING DOSE 200 MG
     Route: 048
     Dates: start: 20190215, end: 20190219
  4. VALPROATE SODIUM [Suspect]
     Active Substance: VALPROATE SODIUM
     Dosage: MORNING DOSE  200 MG, EVENING DOSE 100 MG
     Route: 048
     Dates: start: 20190227, end: 20190305
  5. VALPROATE SODIUM [Suspect]
     Active Substance: VALPROATE SODIUM
     Dosage: MORNING DOSE  200 MG, EVENING DOSE 200 MG
     Route: 048
     Dates: start: 20190305, end: 20190510
  6. LAMOTRIGINE [Concomitant]
     Active Substance: LAMOTRIGINE
     Indication: Product used for unknown indication
     Dates: start: 20190220, end: 20190225
  7. ETHOSUXIMIDE [Concomitant]
     Active Substance: ETHOSUXIMIDE
     Indication: Product used for unknown indication
  8. LEVETIRACETAM [Concomitant]
     Active Substance: LEVETIRACETAM
     Indication: Product used for unknown indication
     Dates: start: 20190422, end: 20190425

REACTIONS (5)
  - Leukopenia [Recovered/Resolved]
  - Thrombocytopenia [Recovered/Resolved]
  - Erythema [Recovered/Resolved]
  - Dermatitis allergic [Unknown]
  - Vomiting [Unknown]

NARRATIVE: CASE EVENT DATE: 20190218
